FAERS Safety Report 4446060-3 (Version None)
Quarter: 2004Q3

REPORT INFORMATION
  Report Type: 
  Country: None (occurrence: None)
  Receive Date: 20040910
  Receipt Date: 20040705
  Transmission Date: 20050211
  Serious: Yes (Life-Threatening, Hospitalization)
  Sender: FDA-Public Use
  Company Number: DE-ROCHE-373299

PATIENT
  Age: 66 Year
  Sex: Male

DRUGS (17)
  1. DACLIZUMAB [Suspect]
     Route: 042
     Dates: end: 20040527
  2. DACLIZUMAB [Suspect]
     Route: 042
     Dates: start: 20040330
  3. MYCOPHENOLATE MOFETIL [Suspect]
     Route: 048
     Dates: start: 20040601, end: 20040705
  4. MYCOPHENOLATE MOFETIL [Suspect]
     Route: 048
     Dates: start: 20040330, end: 20040330
  5. MYCOPHENOLATE MOFETIL [Suspect]
     Route: 048
     Dates: start: 20040331
  6. RAPAMUNE [Suspect]
     Route: 048
     Dates: start: 20040526, end: 20040709
  7. RAPAMUNE [Suspect]
     Route: 048
     Dates: start: 20040330
  8. RAPAMUNE [Suspect]
     Route: 048
     Dates: start: 20040402
  9. RAPAMUNE [Suspect]
     Route: 048
     Dates: start: 20040409
  10. RAPAMUNE [Suspect]
     Route: 048
     Dates: start: 20040511
  11. SOLU-DECORTIN H [Suspect]
     Route: 048
     Dates: start: 20040527, end: 20040709
  12. SOLU-DECORTIN H [Suspect]
     Route: 048
     Dates: start: 20040330
  13. SOLU-DECORTIN H [Suspect]
     Route: 048
     Dates: start: 20040331
  14. SOLU-DECORTIN H [Suspect]
     Route: 048
     Dates: start: 20040401
  15. SOLU-DECORTIN H [Suspect]
     Route: 048
     Dates: start: 20040414
  16. SOLU-DECORTIN H [Suspect]
     Route: 048
     Dates: start: 20040427
  17. VALGANCICLOVIR [Concomitant]
     Route: 048
     Dates: start: 20040402, end: 20040705

REACTIONS (4)
  - DIALYSIS [None]
  - KIDNEY TRANSPLANT REJECTION [None]
  - LEUKOPENIA [None]
  - RENAL FAILURE [None]
